FAERS Safety Report 10066581 (Version 1)
Quarter: 2014Q2

REPORT INFORMATION
  Report Type: Spontaneous
  Country: DK (occurrence: DK)
  Receive Date: 20140408
  Receipt Date: 20140408
  Transmission Date: 20141212
  Serious: Yes (Disabling)
  Sender: FDA-Public Use
  Company Number: PHHY2014DK038249

PATIENT
  Age: 67 Year
  Sex: Male
  Weight: 78 kg

DRUGS (3)
  1. DICLOFENAC [Suspect]
     Indication: RHEUMATOID ARTHRITIS
     Route: 054
     Dates: start: 19980101, end: 20131016
  2. METHOTREXAT [Concomitant]
     Indication: RHEUMATOID ARTHRITIS
     Dates: start: 20130101
  3. ENBREL [Concomitant]
     Indication: RHEUMATOID ARTHRITIS
     Dates: start: 20130706

REACTIONS (2)
  - Rectal ulcer [Recovered/Resolved with Sequelae]
  - Rectal stenosis [Not Recovered/Not Resolved]
